FAERS Safety Report 5678586-9 (Version None)
Quarter: 2008Q1

REPORT INFORMATION
  Report Type: 
  Country: None (occurrence: None)
  Receive Date: 20080325
  Receipt Date: 20080318
  Transmission Date: 20080703
  Serious: Yes (Death)
  Sender: FDA-Public Use
  Company Number: PHHY2008BR03412

PATIENT
  Sex: Male

DRUGS (1)
  1. FORASEQ [Suspect]
     Dosage: 1 CAPSULE OF FORMOTEROL AND BUDESONIDE/DAY
     Route: 048

REACTIONS (1)
  - DEATH [None]
